FAERS Safety Report 18306609 (Version 1)
Quarter: 2020Q3

REPORT INFORMATION
  Report Type: Spontaneous
  Country: US (occurrence: US)
  Receive Date: 20200923
  Receipt Date: 20200923
  Transmission Date: 20201103
  Serious: Yes (Hospitalization)
  Sender: FDA-Public Use
  Company Number: None

PATIENT
  Age: 72 Year
  Sex: Male

DRUGS (2)
  1. TICAGRELOR (TICAGRELOR 90MG TAB) [Suspect]
     Active Substance: TICAGRELOR
     Route: 048
     Dates: start: 20191101, end: 20200504
  2. APIXABAN (APIXABAN 5MG TAB) [Suspect]
     Active Substance: APIXABAN
     Route: 048

REACTIONS (6)
  - Haemorrhage [None]
  - Rectal polyp [None]
  - Dizziness [None]
  - Gastric haemorrhage [None]
  - Anaemia [None]
  - Diverticulum intestinal [None]

NARRATIVE: CASE EVENT DATE: 20200313
